FAERS Safety Report 23394271 (Version 2)
Quarter: 2024Q1

REPORT INFORMATION
  Report Type: Report from Study
  Country: CH (occurrence: CH)
  Receive Date: 20240111
  Receipt Date: 20240226
  Transmission Date: 20240409
  Serious: Yes (Other)
  Sender: FDA-Public Use
  Company Number: CH-GILEAD-2024-0658083

PATIENT
  Age: 51 Year
  Sex: Female

DRUGS (1)
  1. SACITUZUMAB GOVITECAN-HZIY [Suspect]
     Active Substance: SACITUZUMAB GOVITECAN-HZIY
     Indication: Breast cancer metastatic
     Dosage: UNK (2L), 14 MONTHS. NO THERAPY BREAKS, TOLERABILITY GOOD
     Route: 065

REACTIONS (2)
  - Disease progression [Unknown]
  - Off label use [Recovered/Resolved]
